FAERS Safety Report 9771366 (Version 2)
Quarter: 2013Q4

REPORT INFORMATION
  Report Type: Spontaneous
  Country: DK (occurrence: DK)
  Receive Date: 20131218
  Receipt Date: 20131218
  Transmission Date: 20140711
  Serious: Yes (Disabling)
  Sender: FDA-Public Use
  Company Number: DK-GE HEALTHCARE MEDICAL DIAGNOSTICS-OSCN-NO-0901S-0030

PATIENT
  Age: 54 Year
  Sex: Male
  Weight: 85 kg

DRUGS (13)
  1. OMNISCAN [Suspect]
     Indication: PRODUCT USED FOR UNKNOWN INDICATION
     Route: 042
     Dates: start: 20051114, end: 20051114
  2. MAGNEVIST [Concomitant]
     Dates: start: 20060906, end: 20060906
  3. EPREX [Concomitant]
  4. VENOFER [Concomitant]
  5. SANDIMMUN [Concomitant]
  6. PREDNISOLONE [Concomitant]
  7. LOMIR [Concomitant]
  8. APURIN [Concomitant]
  9. DIURAL [Concomitant]
  10. SELO-ZOK [Concomitant]
  11. PHOS-EX [Concomitant]
  12. LESCOL [Concomitant]
  13. ETALPHA [Concomitant]

REACTIONS (1)
  - Nephrogenic systemic fibrosis [Not Recovered/Not Resolved]
